FAERS Safety Report 10793774 (Version 3)
Quarter: 2015Q2

REPORT INFORMATION
  Report Type: Report from Study
  Country: US (occurrence: US)
  Receive Date: 20150213
  Receipt Date: 20150630
  Transmission Date: 20150821
  Serious: No
  Sender: FDA-Public Use
  Company Number: US-ALEXION-A201500405

PATIENT

DRUGS (1)
  1. SOLIRIS [Suspect]
     Active Substance: ECULIZUMAB
     Indication: PAROXYSMAL NOCTURNAL HAEMOGLOBINURIA
     Dosage: UNK
     Route: 042

REACTIONS (5)
  - Urine odour abnormal [Not Recovered/Not Resolved]
  - Exposure to communicable disease [Unknown]
  - Oropharyngeal pain [Unknown]
  - Tinnitus [Unknown]
  - Pyrexia [Unknown]

NARRATIVE: CASE EVENT DATE: 20140819
